FAERS Safety Report 5828472-6 (Version None)
Quarter: 2008Q3

REPORT INFORMATION
  Report Type: 
  Country: None (occurrence: None)
  Receive Date: 20080729
  Receipt Date: 20080714
  Transmission Date: 20090109
  Serious: Yes (Other)
  Sender: FDA-Public Use
  Company Number: 2008001526

PATIENT
  Age: 66 Year
  Sex: Female

DRUGS (12)
  1. ERLOTINIB (ERLOTINIB) (TABLET) (ERLOTINIB) [Suspect]
     Indication: NON-SMALL CELL LUNG CANCER
     Dosage: 150 MG QD ORAL
     Route: 048
     Dates: start: 20080416
  2. LOXONIN (LOXOPROFEN SODIUM) [Concomitant]
  3. SELBEX (TEPRENONE) [Concomitant]
  4. GASTER D [Concomitant]
  5. LENDORM [Concomitant]
  6. MAGNESIUM OXIDE (MAGNESIUM OXIDE) [Concomitant]
  7. AMLODIPINE BESYLATE [Concomitant]
  8. OXYCODONE HCL [Concomitant]
  9. LIPITOR [Concomitant]
  10. FENTANYL TRANSDERMAL SYSTEM [Concomitant]
  11. FLAVITAN (FLAVINE ADENINE DINUCLEOTIDE) [Concomitant]
  12. MAGLAX [Concomitant]

REACTIONS (5)
  - BONE MARROW FAILURE [None]
  - DRUG HYPERSENSITIVITY [None]
  - DYSPNOEA [None]
  - RASH [None]
  - THROMBOCYTOPENIA [None]
